FAERS Safety Report 23418095 (Version 2)
Quarter: 2024Q1

REPORT INFORMATION
  Report Type: Spontaneous
  Country: US (occurrence: US)
  Receive Date: 20240118
  Receipt Date: 20240126
  Transmission Date: 20240410
  Serious: No
  Sender: FDA-Public Use
  Company Number: US-MYLANLABS-2023M1135924

PATIENT
  Age: 78 Year
  Sex: Female
  Weight: 65.32 kg

DRUGS (2)
  1. TYRVAYA [Suspect]
     Active Substance: VARENICLINE TARTRATE
     Indication: Dry eye
     Dosage: UNK, BID
     Route: 065
     Dates: start: 202312
  2. RESTASIS [Concomitant]
     Active Substance: CYCLOSPORINE
     Dosage: UNK
     Route: 065

REACTIONS (5)
  - Application site pain [Unknown]
  - Throat irritation [Unknown]
  - Nasal congestion [Recovering/Resolving]
  - Cough [Unknown]
  - Sneezing [Recovering/Resolving]

NARRATIVE: CASE EVENT DATE: 20231201
